FAERS Safety Report 17091806 (Version 1)
Quarter: 2019Q4

REPORT INFORMATION
  Report Type: Spontaneous
  Country: None (occurrence: US)
  Receive Date: 20191129
  Receipt Date: 20191129
  Transmission Date: 20200122
  Serious: No
  Sender: FDA-Public Use
  Company Number: US-BIO PRODUCTS LABORATORY LTD-2077300

PATIENT
  Age: 55 Year
  Sex: Female

DRUGS (1)
  1. GENERIC IVIG [Suspect]
     Active Substance: HUMAN IMMUNOGLOBULIN G
     Indication: THYROID DERMATOPATHY
     Route: 042

REACTIONS (2)
  - Hypertension [Recovering/Resolving]
  - Off label use [Recovering/Resolving]
